FAERS Safety Report 11527365 (Version 1)
Quarter: 2015Q3

REPORT INFORMATION
  Report Type: Report from Study
  Country: US (occurrence: US)
  Receive Date: 20150920
  Receipt Date: 20150920
  Transmission Date: 20151125
  Serious: No
  Sender: FDA-Public Use
  Company Number: PHEH2015US018304

PATIENT
  Age: 23 Year
  Sex: Female

DRUGS (1)
  1. TOBI PODHALER [Suspect]
     Active Substance: TOBRAMYCIN
     Indication: CYSTIC FIBROSIS
     Dosage: 4 CAPSULES, BID FOR 28 DAYS EVERY OTHER MONTH
     Route: 055

REACTIONS (2)
  - Nephrolithiasis [Unknown]
  - Dizziness [Recovered/Resolved]

NARRATIVE: CASE EVENT DATE: 201501
